FAERS Safety Report 17823341 (Version 1)
Quarter: 2020Q2

REPORT INFORMATION
  Report Type: Spontaneous
  Country: US (occurrence: US)
  Receive Date: 20200522
  Receipt Date: 20200522
  Transmission Date: 20200714
  Serious: Yes (Other)
  Sender: FDA-Public Use
  Company Number: None

PATIENT
  Age: 26 Year
  Sex: Female
  Weight: 83.25 kg

DRUGS (2)
  1. TRI-LO-SPRINTEC [Suspect]
     Active Substance: ETHINYL ESTRADIOL\NORGESTIMATE
     Indication: MENSTRUATION IRREGULAR
     Dosage: ?          QUANTITY:30 TABLET(S);?
     Route: 048
     Dates: start: 20200222, end: 20200515
  2. TRI-LO-SPRINTEC [Suspect]
     Active Substance: ETHINYL ESTRADIOL\NORGESTIMATE
     Indication: PROPHYLAXIS
     Dosage: ?          QUANTITY:30 TABLET(S);?
     Route: 048
     Dates: start: 20200222, end: 20200515

REACTIONS (6)
  - Dysmenorrhoea [None]
  - Nausea [None]
  - Menstrual disorder [None]
  - Insomnia [None]
  - Muscle spasms [None]
  - Abdominal pain upper [None]

NARRATIVE: CASE EVENT DATE: 20200301
